FAERS Safety Report 8321577-X (Version None)
Quarter: 2012Q2

REPORT INFORMATION
  Report Type: 
  Country: None (occurrence: None)
  Receive Date: 20120430
  Receipt Date: 20120424
  Transmission Date: 20120825
  Serious: Yes (Hospitalization, Other)
  Sender: FDA-Public Use
  Company Number: ES-BAYER-2012-038944

PATIENT
  Age: 60 Year
  Sex: Male

DRUGS (1)
  1. BETASERON [Suspect]
     Indication: MULTIPLE SCLEROSIS
     Dosage: UNK

REACTIONS (8)
  - CHILLS [None]
  - ACCIDENT [None]
  - FEELING COLD [None]
  - MULTIPLE SCLEROSIS RELAPSE [None]
  - MUSCLE STRAIN [None]
  - PAIN [None]
  - MUSCLE RIGIDITY [None]
  - INFLUENZA LIKE ILLNESS [None]
